FAERS Safety Report 9041011 (Version 1)
Quarter: 2013Q1

REPORT INFORMATION
  Report Type: Spontaneous
  Country: US (occurrence: None)
  Receive Date: 20130123
  Receipt Date: 20130123
  Transmission Date: 20140127
  Serious: Yes (Life-Threatening, Hospitalization, Disabling, Other)
  Sender: FDA-Public Use
  Company Number: None

PATIENT
  Age: 46 Year
  Sex: Female
  Weight: 77.11 kg

DRUGS (2)
  1. RESPERIDOL CONSTA [Suspect]
     Indication: SCHIZOAFFECTIVE DISORDER
     Dosage: 3 DOSES ONLY - JAN. 2011 ?I GOT WORSE IN 2013
  2. RESPERIDOL CONSTA [Suspect]
     Indication: BIPOLAR DISORDER
     Dosage: 3 DOSES ONLY - JAN. 2011 ?I GOT WORSE IN 2013

REACTIONS (4)
  - Feeling abnormal [None]
  - Burning sensation [None]
  - Tinnitus [None]
  - Movement disorder [None]
